FAERS Safety Report 7649873-X (Version None)
Quarter: 2011Q3

REPORT INFORMATION
  Report Type: 
  Country: None (occurrence: None)
  Receive Date: 20110802
  Receipt Date: 20110705
  Transmission Date: 20111222
  Serious: Yes (Other)
  Sender: FDA-Public Use
  Company Number: PHHY2011US52275

PATIENT
  Sex: Male

DRUGS (1)
  1. GLEEVEC [Suspect]
     Indication: GASTRIC CANCER
     Dosage: 1 DF (400 MG), QD
     Route: 048

REACTIONS (4)
  - NAUSEA [None]
  - FATIGUE [None]
  - RENAL FAILURE CHRONIC [None]
  - ASTHENIA [None]
